FAERS Safety Report 5194206-4 (Version None)
Quarter: 2006Q4

REPORT INFORMATION
  Report Type: 
  Country: None (occurrence: None)
  Receive Date: 20061228
  Receipt Date: 20060801
  Transmission Date: 20070319
  Serious: Yes (Other)
  Sender: FDA-Public Use
  Company Number: US-PFIZER INC-2006094397

PATIENT
  Sex: Female

DRUGS (10)
  1. NEURONTIN [Suspect]
     Indication: EPILEPSY
  2. GABAPENTIN [Concomitant]
  3. PROPAFENONE HCL [Concomitant]
  4. CARTIA XT [Concomitant]
  5. LISINOPRIL [Concomitant]
  6. DIGOXIN [Concomitant]
  7. CARDIZEM [Concomitant]
  8. LIBRIUM [Concomitant]
  9. TEGRETOL [Concomitant]
  10. PROCARDIA [Concomitant]

REACTIONS (5)
  - BURNS THIRD DEGREE [None]
  - COMPLEX PARTIAL SEIZURES [None]
  - DRUG INEFFECTIVE [None]
  - PHARMACEUTICAL PRODUCT COMPLAINT [None]
  - POOR QUALITY DRUG ADMINISTERED [None]
